FAERS Safety Report 14943803 (Version 2)
Quarter: 2018Q2

REPORT INFORMATION
  Report Type: Spontaneous
  Country: US (occurrence: US)
  Receive Date: 20180528
  Receipt Date: 20180615
  Transmission Date: 20180711
  Serious: No
  Sender: FDA-Public Use
  Company Number: US-TEVA-2018-US-896222

PATIENT
  Sex: Male

DRUGS (1)
  1. BACITRACIN ZINC. [Suspect]
     Active Substance: BACITRACIN ZINC
     Indication: WOUND
     Dosage: DOSE STRENGTH:  500 UNITS
     Route: 065
     Dates: start: 20180512

REACTIONS (1)
  - Application site swelling [Unknown]

NARRATIVE: CASE EVENT DATE: 20180512
